FAERS Safety Report 4370017-4 (Version None)
Quarter: 2004Q2

REPORT INFORMATION
  Report Type: 
  Country: None (occurrence: None)
  Receive Date: 20040525
  Receipt Date: 20040512
  Transmission Date: 20050107
  Serious: Yes (Hospitalization, Other)
  Sender: FDA-Public Use
  Company Number: 2004018574

PATIENT
  Age: 79 Year
  Sex: Male

DRUGS (13)
  1. NORVASC [Suspect]
     Indication: HYPERTENSION
     Dosage: 15 MG (DAILY), ORAL
     Route: 048
     Dates: start: 20030311, end: 20040224
  2. CARDENALIN (DOXAZOSIN) [Suspect]
     Indication: HYPERTENSION
     Dosage: ORAL
     Route: 048
     Dates: start: 20030325
  3. CANDESARTAN CILEXETIL (CANDESARTAN CILEXETIL) [Suspect]
     Indication: ILL-DEFINED DISORDER
     Dosage: 12 MG (DAILY), ORAL
     Route: 048
     Dates: start: 20020802, end: 20040224
  4. RIFAMPICIN [Suspect]
     Indication: PULMONARY TUBERCULOSIS
     Dosage: 300 MG ORAL
     Route: 048
     Dates: start: 20030311, end: 20040204
  5. FUROSEMIDE [Concomitant]
  6. CARVEDILOL [Concomitant]
  7. BETA BLOCKING AGENTS (BETA BLOCKING AGENTS) [Concomitant]
  8. ANGIOTENSIN II ANTAGONISTS (ANGIOTENSIN II ANTAGONISTS) [Concomitant]
  9. ALLOPURINOL [Concomitant]
  10. GLYBURIDE [Concomitant]
  11. ETIZOLAM (ETIZOLAM) [Concomitant]
  12. ETHAMBUTOL HCL [Concomitant]
  13. ISONIAZID [Concomitant]

REACTIONS (11)
  - BLOOD PRESSURE INADEQUATELY CONTROLLED [None]
  - DRUG EFFECT DECREASED [None]
  - DRUG EFFECT INCREASED [None]
  - DRUG INTERACTION [None]
  - DYSPNOEA [None]
  - GENERALISED OEDEMA [None]
  - NEPHROTIC SYNDROME [None]
  - PLEURAL EFFUSION [None]
  - RENAL FAILURE CHRONIC [None]
  - TUBERCULOUS PLEURISY [None]
  - WEIGHT INCREASED [None]
